FAERS Safety Report 21806771 (Version 1)
Quarter: 2023Q1

REPORT INFORMATION
  Report Type: Report from Study
  Country: US (occurrence: US)
  Receive Date: 20230102
  Receipt Date: 20230102
  Transmission Date: 20230417
  Serious: No
  Sender: FDA-Public Use
  Company Number: US-ABBVIE-4255604

PATIENT
  Sex: Male

DRUGS (5)
  1. VENCLEXTA [Suspect]
     Active Substance: VENETOCLAX
     Indication: Chronic myelomonocytic leukaemia
     Dosage: FORM STRENGTH: 100 MILLIGRAM?DURATION TEXT: TAKE 4 TAB ONCE DAILY FOR 14DAYS
     Route: 048
  2. LAMICTAL [Concomitant]
     Active Substance: LAMOTRIGINE
     Indication: Product used for unknown indication
  3. AMBIEN [Concomitant]
     Active Substance: ZOLPIDEM TARTRATE
     Indication: Product used for unknown indication
  4. TRANYLCYPROMINE SULFATE [Concomitant]
     Active Substance: TRANYLCYPROMINE SULFATE
     Indication: Product used for unknown indication
  5. ALLOPURINOL [Concomitant]
     Active Substance: ALLOPURINOL
     Indication: Product used for unknown indication

REACTIONS (1)
  - Off label use [Unknown]
